FAERS Safety Report 6031240-6 (Version None)
Quarter: 2008Q4

REPORT INFORMATION
  Report Type: 
  Country: None (occurrence: None)
  Receive Date: 20081224
  Receipt Date: 20081117
  Transmission Date: 20090506
  Serious: No
  Sender: FDA-Public Use
  Company Number: 2008PV037142

PATIENT
  Age: 56 Year
  Sex: Male

DRUGS (6)
  1. SYMLIN [Suspect]
     Indication: TYPE 1 DIABETES MELLITUS
     Dosage: 30 MCG;TID;SC; 15 MCG;TID;SC
     Route: 058
     Dates: start: 20081113, end: 20081101
  2. SYMLIN [Suspect]
     Indication: TYPE 1 DIABETES MELLITUS
     Dosage: 30 MCG;TID;SC; 15 MCG;TID;SC
     Route: 058
     Dates: start: 20081101
  3. HUMALOG [Concomitant]
  4. LANTUS [Concomitant]
  5. VYTORIN [Concomitant]
  6. RAMIPRIL [Concomitant]

REACTIONS (1)
  - BLOOD GLUCOSE INCREASED [None]
